FAERS Safety Report 4674287-4 (Version None)
Quarter: 2005Q2

REPORT INFORMATION
  Report Type: 
  Country: None (occurrence: None)
  Receive Date: 20050526
  Receipt Date: 20050316
  Transmission Date: 20051028
  Serious: Yes (Other)
  Sender: FDA-Public Use
  Company Number: DE-BOEHRINGER INGELHEIM PHARMACEUTICALS, INC.-2005-DE-01099DE

PATIENT
  Sex: Male

DRUGS (1)
  1. ALNA [Suspect]
     Indication: MICTURITION DISORDER
     Route: 048

REACTIONS (3)
  - IMMUNOGLOBULINS INCREASED [None]
  - LUMBAR VERTEBRA INJURY [None]
  - MULTIPLE MYELOMA [None]
